FAERS Safety Report 8192538-9 (Version None)
Quarter: 2012Q1

REPORT INFORMATION
  Report Type: 
  Country: None (occurrence: None)
  Receive Date: 20120308
  Receipt Date: 20120229
  Transmission Date: 20120608
  Serious: No
  Sender: FDA-Public Use
  Company Number: US-BIOGENIDEC-2012BI007516

PATIENT
  Sex: Female

DRUGS (17)
  1. GABAPENTIN [Concomitant]
     Indication: NEURALGIA
  2. DILTIAZEM HCL [Concomitant]
     Indication: HYPERTENSION
  3. FLUOXETINE HCL [Concomitant]
     Indication: MULTIPLE ALLERGIES
  4. BUPROPION HCL [Concomitant]
     Indication: ANXIETY
  5. CALCIUM (NOS) [Concomitant]
     Indication: MENOPAUSE
  6. NABUMETONE [Concomitant]
     Indication: ARTHRITIS
     Dates: start: 20000101
  7. BENAZEPRIL HYDROCHLORIDE [Concomitant]
     Indication: HYPERTENSION
     Dates: start: 20020101
  8. VITAMIN E [Concomitant]
     Indication: PRODUCT USED FOR UNKNOWN INDICATION
  9. AVONEX [Suspect]
     Indication: MULTIPLE SCLEROSIS
     Route: 030
     Dates: start: 20040824, end: 20120201
  10. HYDROCODONE BITARTRATE [Concomitant]
     Indication: PAIN
  11. CYCLOBENZAPRINE [Concomitant]
     Indication: MUSCLE SPASMS
  12. CARDIZEM [Concomitant]
     Indication: HYPERTENSION
  13. AMANTADINE HCL [Concomitant]
     Indication: FATIGUE
  14. MULTI-VITAMIN [Concomitant]
     Indication: PRODUCT USED FOR UNKNOWN INDICATION
  15. BUPROPION HCL [Concomitant]
     Indication: DEPRESSION
  16. FISH OIL [Concomitant]
     Indication: PRODUCT USED FOR UNKNOWN INDICATION
  17. SUPER B [Concomitant]
     Indication: PRODUCT USED FOR UNKNOWN INDICATION

REACTIONS (10)
  - HYPOAESTHESIA [None]
  - BLOOD PRESSURE INCREASED [None]
  - BLOOD CHOLESTEROL INCREASED [None]
  - ANGER [None]
  - BALANCE DISORDER [None]
  - ROAD TRAFFIC ACCIDENT [None]
  - AXILLARY PAIN [None]
  - LACERATION [None]
  - LOSS OF CONSCIOUSNESS [None]
  - FALL [None]
